FAERS Safety Report 19354757 (Version 4)
Quarter: 2022Q1

REPORT INFORMATION
  Report Type: Spontaneous
  Country: CH (occurrence: CH)
  Receive Date: 20210602
  Receipt Date: 20220203
  Transmission Date: 20220423
  Serious: Yes (Other)
  Sender: FDA-Public Use
  Company Number: CH-UCBSA-2021015413

PATIENT
  Age: 45 Year
  Sex: Female

DRUGS (14)
  1. EVENITY [Suspect]
     Active Substance: ROMOSOZUMAB-AQQG
     Indication: Osteoporosis
     Dosage: 210 MILLIGRAM, MONTHLY (QM)
     Route: 065
     Dates: start: 20210325
  2. EVENITY [Suspect]
     Active Substance: ROMOSOZUMAB-AQQG
     Indication: Off label use
  3. NOVORAPID [Concomitant]
     Active Substance: INSULIN ASPART
     Indication: Anamnestic reaction
     Dosage: UNK, 1 UNIT PER 30 GRAM CARBOHYDRATE
  4. NOVORAPID [Concomitant]
     Active Substance: INSULIN ASPART
     Dosage: 1 UNIT PER 30 GRAM CARBOHYDRATE
  5. CALCIUM\CHOLECALCIFEROL [Concomitant]
     Active Substance: CALCIUM\CHOLECALCIFEROL
     Indication: Anamnestic reaction
     Dosage: UNK, ONCE DAILY (QD)
  6. CALCIUM\CHOLECALCIFEROL [Concomitant]
     Active Substance: CALCIUM\CHOLECALCIFEROL
     Dosage: UNK, ONCE DAILY (QD)
  7. VITAMIN D3 [Concomitant]
     Active Substance: CHOLECALCIFEROL
     Dosage: UNK, 500 IU/DROPS 10 DROPS 1 X PER WEEK
  8. VITAMIN D3 [Concomitant]
     Active Substance: CHOLECALCIFEROL
     Dosage: 500 IU/DROPS 10 DROPS 1 X PER WEEK
  9. TERIPARATIDE [Concomitant]
     Active Substance: TERIPARATIDE
     Indication: Product used for unknown indication
     Dosage: UNK
  10. TERIPARATIDE [Concomitant]
     Active Substance: TERIPARATIDE
  11. PREDNISONE [Concomitant]
     Active Substance: PREDNISONE
     Indication: Allergy prophylaxis
  12. PREDNISONE [Concomitant]
     Active Substance: PREDNISONE
  13. CORTISONE [Concomitant]
     Active Substance: CORTISONE
     Indication: Injection site pain
  14. CORTISONE [Concomitant]
     Active Substance: CORTISONE

REACTIONS (4)
  - Asthma [Recovered/Resolved]
  - Injection site pain [Recovered/Resolved]
  - Spinal fracture [Unknown]
  - Off label use [Unknown]

NARRATIVE: CASE EVENT DATE: 20210325
